FAERS Safety Report 14070871 (Version 1)
Quarter: 2017Q4

REPORT INFORMATION
  Report Type: Spontaneous
  Country: US (occurrence: US)
  Receive Date: 20171010
  Receipt Date: 20171010
  Transmission Date: 20180321
  Serious: No
  Sender: FDA-Public Use
  Company Number: US-JNJFOC-20170903805

PATIENT
  Sex: Female
  Weight: 61 kg

DRUGS (20)
  1. ACETIC ACID. [Concomitant]
     Active Substance: ACETIC ACID
  2. CARISOPRODOL. [Concomitant]
     Active Substance: CARISOPRODOL
  3. LEVOTHYROXINE. [Concomitant]
     Active Substance: LEVOTHYROXINE
  4. IMBRUVICA [Suspect]
     Active Substance: IBRUTINIB
     Indication: PRODUCT USED FOR UNKNOWN INDICATION
     Route: 048
     Dates: start: 20170413
  5. HYDROCODONE/ACETAMINOPHEN [Concomitant]
     Active Substance: ACETAMINOPHEN\HYDROCODONE
  6. LISINOPRIL. [Concomitant]
     Active Substance: LISINOPRIL
  7. PRESERVISION AREDS [Concomitant]
     Active Substance: MINERALS\VITAMINS
  8. VERAPAMIL [Concomitant]
     Active Substance: VERAPAMIL HYDROCHLORIDE
  9. ALLOPURINOL. [Concomitant]
     Active Substance: ALLOPURINOL
  10. BUPROPION. [Concomitant]
     Active Substance: BUPROPION
  11. GAVISCON [Concomitant]
     Active Substance: ALUMINUM HYDROXIDE\MAGNESIUM CARBONATE
  12. PROTONIX [Concomitant]
     Active Substance: PANTOPRAZOLE SODIUM
  13. CYANOCOBALAMIN. [Concomitant]
     Active Substance: CYANOCOBALAMIN
  14. TRAZODONE [Concomitant]
     Active Substance: TRAZODONE HYDROCHLORIDE
  15. BEANO [Concomitant]
     Active Substance: ASPERGILLUS NIGER .ALPHA.-GALACTOSIDASE
  16. GAS-X [Concomitant]
     Active Substance: DIMETHICONE
  17. DOCUSATE [Concomitant]
     Active Substance: DOCUSATE
  18. FEXOFENADINE [Concomitant]
     Active Substance: FEXOFENADINE\FEXOFENADINE HYDROCHLORIDE
  19. FUROSEMIDE. [Concomitant]
     Active Substance: FUROSEMIDE
  20. HYDROXYZINE [Concomitant]
     Active Substance: HYDROXYZINE HYDROCHLORIDE

REACTIONS (1)
  - Muscle spasms [Unknown]
